FAERS Safety Report 6608244-5 (Version None)
Quarter: 2010Q1

REPORT INFORMATION
  Report Type: 
  Country: None (occurrence: None)
  Receive Date: 20100301
  Receipt Date: 20100217
  Transmission Date: 20100710
  Serious: Yes (Death)
  Sender: FDA-Public Use
  Company Number: GB-ROCHE-685852

PATIENT
  Age: 9 Year
  Sex: Female

DRUGS (3)
  1. TAMIFLU [Suspect]
     Indication: DRUG USE FOR UNKNOWN INDICATION
     Route: 065
     Dates: start: 20091124, end: 20091129
  2. SEPTRIN [Suspect]
     Indication: DRUG USE FOR UNKNOWN INDICATION
     Dosage: (ESTIMATED FROM WEIGHT, NO DRUG CHART AVAILABLE)
     Route: 065
     Dates: start: 20091109, end: 20091111
  3. PANDEMRIX [Suspect]
     Route: 065
     Dates: start: 20091118, end: 20091118

REACTIONS (1)
  - PANCYTOPENIA [None]
